FAERS Safety Report 10009580 (Version 1)
Quarter: 2014Q1

REPORT INFORMATION
  Report Type: Spontaneous
  Country: US (occurrence: US)
  Receive Date: 20140312
  Receipt Date: 20140312
  Transmission Date: 20141002
  Serious: No
  Sender: FDA-Public Use
  Company Number: US-INCYTE CORPORATION-2012IN002061

PATIENT
  Sex: Male

DRUGS (10)
  1. JAKAFI [Suspect]
     Indication: MYELOFIBROSIS
     Dosage: 10 MG, UNK
     Route: 048
  2. HUMALOG [Concomitant]
     Dosage: UNK
  3. LANTUS SOLOSTAR [Concomitant]
     Dosage: UNK
  4. LOSARTAN [Concomitant]
     Dosage: UNK
  5. CARVEDILOL [Concomitant]
     Dosage: UNK
  6. MAGNESIUM [Concomitant]
     Dosage: UNK
  7. DICLOFENAC [Concomitant]
     Dosage: UNK
  8. VICODIN [Concomitant]
     Dosage: UNK
  9. SOMA [Concomitant]
     Dosage: UNK
  10. VIAGRA [Concomitant]
     Dosage: UNK

REACTIONS (3)
  - Blood glucose fluctuation [Unknown]
  - Dysphonia [Unknown]
  - Fatigue [Unknown]
